FAERS Safety Report 14315533 (Version 1)
Quarter: 2017Q4

REPORT INFORMATION
  Report Type: Spontaneous
  Country: US (occurrence: US)
  Receive Date: 20171221
  Receipt Date: 20171221
  Transmission Date: 20180321
  Serious: No
  Sender: FDA-Public Use
  Company Number: US-IMPAX LABORATORIES, INC-2017-IPXL-01853

PATIENT
  Sex: Male

DRUGS (1)
  1. COLESTIPOL HYDROCHLORIDE. [Suspect]
     Active Substance: COLESTIPOL HYDROCHLORIDE
     Indication: PRODUCT USED FOR UNKNOWN INDICATION
     Dosage: 1 G, EVERY NIGHT AT BEDTIME, 1 DF
     Route: 048
     Dates: start: 2017, end: 2017

REACTIONS (5)
  - Product friable [Unknown]
  - Poor quality drug administered [Unknown]
  - Choking [Recovered/Resolved]
  - Product use complaint [Recovered/Resolved]
  - Retching [Recovered/Resolved]

NARRATIVE: CASE EVENT DATE: 2017
